FAERS Safety Report 4964508-2 (Version None)
Quarter: 2006Q1

REPORT INFORMATION
  Report Type: 
  Country: None (occurrence: None)
  Receive Date: 20060331
  Receipt Date: 20060317
  Transmission Date: 20060701
  Serious: Yes (Death, Other)
  Sender: FDA-Public Use
  Company Number: 2006-00604

PATIENT
  Age: 67 Year
  Sex: Female
  Weight: 77 kg

DRUGS (4)
  1. VELCADE [Suspect]
     Indication: MANTLE CELL LYMPHOMA
     Dosage: SEE IMAGE
     Route: 042
     Dates: start: 20051006, end: 20051101
  2. VELCADE [Suspect]
     Indication: MANTLE CELL LYMPHOMA
     Dosage: SEE IMAGE
     Route: 042
     Dates: start: 20051127, end: 20051219
  3. DORMICUM (NITRAZEPAM) [Concomitant]
  4. PRIMPERAN TAB [Concomitant]

REACTIONS (4)
  - DISEASE PROGRESSION [None]
  - FATIGUE [None]
  - LEUKAEMIA [None]
  - MANTLE CELL LYMPHOMA [None]
